FAERS Safety Report 9807263 (Version 2)
Quarter: 2014Q1

REPORT INFORMATION
  Report Type: Spontaneous
  Country: US (occurrence: US)
  Receive Date: 20140110
  Receipt Date: 20140325
  Transmission Date: 20141002
  Serious: No
  Sender: FDA-Public Use
  Company Number: US-BIOGENIDEC-2014BI002061

PATIENT
  Age: 70 Year
  Sex: Female

DRUGS (2)
  1. AVONEX [Suspect]
     Indication: MULTIPLE SCLEROSIS
     Route: 030
  2. AMPYRA [Concomitant]
     Indication: GAIT DISTURBANCE

REACTIONS (5)
  - Wound [Not Recovered/Not Resolved]
  - Lymphoedema [Not Recovered/Not Resolved]
  - Impaired healing [Recovered/Resolved]
  - Staphylococcal infection [Unknown]
  - Excoriation [Unknown]
